FAERS Safety Report 23487669 (Version 1)
Quarter: 2024Q1

REPORT INFORMATION
  Report Type: Other
  Country: None (occurrence: TR)
  Receive Date: 20240206
  Receipt Date: 20240206
  Transmission Date: 20240409
  Serious: Yes (Life-Threatening, Hospitalization, Other)
  Sender: FDA-Public Use
  Company Number: TR-B.Braun Medical Inc.-2152709

PATIENT
  Age: 74 Year
  Sex: Male

DRUGS (2)
  1. HEPARIN SODIUM IN DEXTROSE [Suspect]
     Active Substance: HEPARIN SODIUM
     Indication: Anticoagulant therapy
     Route: 042
  2. TICAGRELOR [Suspect]
     Active Substance: TICAGRELOR

REACTIONS (3)
  - Abdominal wall haematoma [None]
  - Ecchymosis [None]
  - Acute kidney injury [None]
